FAERS Safety Report 4513851-X (Version None)
Quarter: 2004Q4

REPORT INFORMATION
  Report Type: 
  Country: None (occurrence: None)
  Receive Date: 20041130
  Receipt Date: 20040915
  Transmission Date: 20050328
  Serious: No
  Sender: FDA-Public Use
  Company Number: US-GLAXOSMITHKLINE-A0525798A

PATIENT
  Age: 30 Year
  Sex: Female

DRUGS (3)
  1. WELLBUTRIN XL [Suspect]
     Indication: ILL-DEFINED DISORDER
     Dosage: 300MG UNKNOWN
     Route: 048
     Dates: start: 20040801
  2. ASPIRIN [Concomitant]
  3. VITAMIN [Concomitant]

REACTIONS (3)
  - ARTHRALGIA [None]
  - RASH [None]
  - SWELLING FACE [None]
